FAERS Safety Report 12937791 (Version 1)
Quarter: 2016Q4

REPORT INFORMATION
  Report Type: Spontaneous
  Country: US (occurrence: US)
  Receive Date: 20161114
  Receipt Date: 20161114
  Transmission Date: 20170207
  Serious: No
  Sender: FDA-Public Use
  Company Number: US-MYLANLABS-2016M1041921

PATIENT
  Age: 28 Year
  Sex: Female

DRUGS (1)
  1. XULANE [Suspect]
     Active Substance: ETHINYL ESTRADIOL\NORELGESTROMIN
     Indication: CONTRACEPTION
     Dosage: 150/35 ?G, QD, CHANGE QWK
     Route: 062
     Dates: start: 20160512

REACTIONS (1)
  - Application site irritation [Recovered/Resolved]

NARRATIVE: CASE EVENT DATE: 20160512
